FAERS Safety Report 8894601 (Version 2)
Quarter: 2013Q3

REPORT INFORMATION
  Report Type: Spontaneous
  Country: GB (occurrence: GB)
  Receive Date: 20121108
  Receipt Date: 20130719
  Transmission Date: 20140515
  Serious: No
  Sender: FDA-Public Use
  Company Number: GB-ASTELLAS-2012EU009729

PATIENT
  Age: 53 Year
  Sex: Male
  Weight: 98 kg

DRUGS (9)
  1. VESICARE [Suspect]
     Indication: PROSTATISM
     Dosage: 5 MG, UID/QD
     Route: 048
     Dates: start: 20100922, end: 20121128
  2. ASPIRIN [Concomitant]
     Dosage: 75 MG, UID/QD
     Route: 065
  3. METFORMIN                          /00082702/ [Concomitant]
     Dosage: 1 G, UID/QD
     Route: 065
  4. AMLODIPINE [Concomitant]
     Dosage: 10 MG, UID/QD
     Route: 065
  5. EZETIMIBE [Concomitant]
     Dosage: 10 MG, UID/QD
     Route: 065
  6. LOSARTAN [Concomitant]
     Dosage: 100 MG, UID/QD
     Route: 065
  7. BEZAFIBRATE [Concomitant]
     Dosage: 400 MG, UID/QD
     Route: 065
  8. SIMVASTATIN [Concomitant]
     Dosage: 40 MG, UID/QD
     Route: 065
  9. FLECAINIDE [Concomitant]
     Dosage: 50 MG, BID
     Route: 065

REACTIONS (3)
  - Off label use [Unknown]
  - Palpitations [Recovered/Resolved]
  - Dizziness [Recovered/Resolved]
